FAERS Safety Report 11394752 (Version 2)
Quarter: 2015Q3

REPORT INFORMATION
  Report Type: Report from Study
  Country: BR (occurrence: BR)
  Receive Date: 20150819
  Receipt Date: 20150915
  Transmission Date: 20151125
  Serious: Yes (Other)
  Sender: FDA-Public Use
  Company Number: BR-ACTELION-A-CH2015-122598

PATIENT
  Age: 6 Year
  Sex: Female
  Weight: 17 kg

DRUGS (3)
  1. SACCHAROMYCES BOULARDII [Concomitant]
     Active Substance: SACCHAROMYCES CEREVISIAE
     Indication: DIARRHOEA
     Dosage: 200 MG, QD
     Dates: start: 20131220
  2. ZAVESCA [Suspect]
     Active Substance: MIGLUSTAT
     Indication: NIEMANN-PICK DISEASE
     Dosage: 100 MG, TID
     Route: 048
     Dates: start: 20130614
  3. IMIPRAMINE [Concomitant]
     Active Substance: IMIPRAMINE
     Indication: CATAPLEXY
     Dosage: 10 MG, BID
     Dates: start: 20131220

REACTIONS (2)
  - Seizure [Recovered/Resolved]
  - Thrombocytopenia [Unknown]

NARRATIVE: CASE EVENT DATE: 201505
